FAERS Safety Report 17393068 (Version 1)
Quarter: 2020Q1

REPORT INFORMATION
  Report Type: Spontaneous
  Country: US (occurrence: US)
  Receive Date: 20200207
  Receipt Date: 20200207
  Transmission Date: 20200409
  Serious: No
  Sender: FDA-Public Use
  Company Number: US-MYLANLABS-2020M1010832

PATIENT
  Sex: Female
  Weight: 61 kg

DRUGS (2)
  1. SINEMET [Suspect]
     Active Substance: CARBIDOPA\LEVODOPA
     Indication: PARKINSON^S DISEASE
     Dosage: UNK
  2. CLONIDINE. [Suspect]
     Active Substance: CLONIDINE
     Indication: DYSKINESIA
     Dosage: UNK UNK, PM 1 AT NIGHT
     Route: 048

REACTIONS (8)
  - Abdominal pain [Not Recovered/Not Resolved]
  - Blood pressure fluctuation [Not Recovered/Not Resolved]
  - Therapeutic response unexpected [Unknown]
  - Product substitution issue [Unknown]
  - Off label use [Unknown]
  - Anxiety [Not Recovered/Not Resolved]
  - Myalgia [Not Recovered/Not Resolved]
  - Withdrawal syndrome [Unknown]
